APPROVED DRUG PRODUCT: MINIPRESS
Active Ingredient: PRAZOSIN HYDROCHLORIDE
Strength: EQ 2MG BASE
Dosage Form/Route: CAPSULE;ORAL
Application: N017442 | Product #003 | TE Code: AB
Applicant: PFIZER LABORATORIES DIV PFIZER INC
Approved: Approved Prior to Jan 1, 1982 | RLD: Yes | RS: Yes | Type: RX